FAERS Safety Report 8034376-3 (Version None)
Quarter: 2012Q1

REPORT INFORMATION
  Report Type: 
  Country: None (occurrence: None)
  Receive Date: 20120110
  Receipt Date: 20120106
  Transmission Date: 20120608
  Serious: Yes (Life-Threatening, Other)
  Sender: FDA-Public Use
  Company Number: US-ASTRAZENECA-2011SE00611

PATIENT
  Age: 77 Year
  Sex: Female

DRUGS (2)
  1. CRESTOR [Suspect]
     Route: 048
  2. LISINOPRIL [Suspect]
     Route: 048

REACTIONS (4)
  - WEIGHT INCREASED [None]
  - APPARENT DEATH [None]
  - MYOCARDIAL INFARCTION [None]
  - BLOOD CHOLESTEROL INCREASED [None]
